FAERS Safety Report 21269754 (Version 3)
Quarter: 2022Q4

REPORT INFORMATION
  Report Type: Spontaneous
  Country: US (occurrence: US)
  Receive Date: 20220830
  Receipt Date: 20221014
  Transmission Date: 20230113
  Serious: Yes (Hospitalization, Other)
  Sender: FDA-Public Use
  Company Number: US-LEO Pharma-344888

PATIENT
  Sex: Female
  Weight: 8 kg

DRUGS (2)
  1. DUPIXENT [Suspect]
     Active Substance: DUPILUMAB
     Indication: Dermatitis atopic
     Dosage: DOSAGE : REASON LOT NO UNKNOWN : UNKNOWN GIVEN DURATION :STARTED - PARTIAL : STOPPED - PARTIAL :
  2. PROTOPIC [Suspect]
     Active Substance: TACROLIMUS
     Indication: Product used for unknown indication
     Dosage: DOSAGE : REASON LOT NO UNKNOWN : UNKNOWN GIVEN DURATION : STARTED - PARTIAL : STOPPED - PARTIAL :

REACTIONS (3)
  - Foetal exposure during pregnancy [Unknown]
  - Premature baby [Recovered/Resolved]
  - Abnormal labour affecting foetus [Recovering/Resolving]
